FAERS Safety Report 25794741 (Version 1)
Quarter: 2025Q3

REPORT INFORMATION
  Report Type: Report from Study
  Country: US (occurrence: US)
  Receive Date: 20250912
  Receipt Date: 20250912
  Transmission Date: 20251021
  Serious: Yes (Other)
  Sender: ALEXION PHARMACEUTICALS
  Company Number: US-AstraZeneca-CH-00945713A

PATIENT
  Sex: Male

DRUGS (2)
  1. DAPAGLIFLOZIN [Suspect]
     Active Substance: DAPAGLIFLOZIN
     Route: 065
  2. BUDESONIDE\FORMOTEROL\GLYCOPYRRONIUM [Suspect]
     Active Substance: BUDESONIDE\FORMOTEROL\GLYCOPYRRONIUM
     Route: 065

REACTIONS (11)
  - Drug hypersensitivity [Unknown]
  - Diabetic retinopathy [Unknown]
  - Chronic kidney disease [Unknown]
  - Hypertension [Unknown]
  - Type 2 diabetes mellitus [Unknown]
  - Obesity [Unknown]
  - Gastrooesophageal reflux disease [Unknown]
  - Aortic aneurysm [Unknown]
  - Hyperlipidaemia [Unknown]
  - Neuropathy peripheral [Unknown]
  - Emphysema [Unknown]
